FAERS Safety Report 20801101 (Version 1)
Quarter: 2022Q2

REPORT INFORMATION
  Report Type: Spontaneous
  Country: US (occurrence: US)
  Receive Date: 20220509
  Receipt Date: 20220509
  Transmission Date: 20220721
  Serious: Yes (Other)
  Sender: FDA-Public Use
  Company Number: US-PURACAP-US-2022EPCSPO00257

PATIENT
  Sex: Female

DRUGS (3)
  1. MAXIMUM STRENGTH MUCINEX SINUS-MAX SEVERE CONGESTION AND PAIN [Suspect]
     Active Substance: ACETAMINOPHEN\GUAIFENESIN\PHENYLEPHRINE HYDROCHLORIDE
     Indication: Nasopharyngitis
     Dosage: GEL CAP
     Route: 048
     Dates: start: 20220315, end: 20220319
  2. MAXIMUM STRENGTH MUCINEX SINUS-MAX SEVERE CONGESTION AND PAIN [Suspect]
     Active Substance: ACETAMINOPHEN\GUAIFENESIN\PHENYLEPHRINE HYDROCHLORIDE
  3. MAXIMUM STRENGTH MUCINEX SINUS-MAX SEVERE CONGESTION AND PAIN [Suspect]
     Active Substance: ACETAMINOPHEN\GUAIFENESIN\PHENYLEPHRINE HYDROCHLORIDE

REACTIONS (2)
  - Foreign body in throat [Unknown]
  - Product use complaint [Unknown]

NARRATIVE: CASE EVENT DATE: 20220315
